FAERS Safety Report 22187983 (Version 1)
Quarter: 2023Q2

REPORT INFORMATION
  Report Type: Report from Study
  Country: IT (occurrence: IT)
  Receive Date: 20230408
  Receipt Date: 20230408
  Transmission Date: 20230722
  Serious: Yes (Hospitalization)
  Sender: FDA-Public Use
  Company Number: None

PATIENT
  Age: 69 Year
  Sex: Male

DRUGS (3)
  1. AMIODARONE [Suspect]
     Active Substance: AMIODARONE
     Indication: Drug abuse
     Dosage: 200MG
     Route: 065
     Dates: start: 20220711, end: 20220711
  2. XARELTO [Suspect]
     Active Substance: RIVAROXABAN
     Indication: Drug abuse
     Dosage: 10-15 CPS
     Route: 065
     Dates: start: 20220711, end: 20220711
  3. ZOLPIDEM [Concomitant]
     Active Substance: ZOLPIDEM TARTRATE
     Indication: Drug abuse
     Route: 065

REACTIONS (2)
  - Sopor [Recovering/Resolving]
  - Bradycardia [Recovering/Resolving]

NARRATIVE: CASE EVENT DATE: 20220711
